FAERS Safety Report 9440189 (Version 1)
Quarter: 2013Q3

REPORT INFORMATION
  Report Type: Spontaneous
  Country: JP (occurrence: JP)
  Receive Date: 20130805
  Receipt Date: 20130805
  Transmission Date: 20140515
  Serious: Yes (Hospitalization, Other)
  Sender: FDA-Public Use
  Company Number: PHHY2013JP067992

PATIENT
  Sex: Male

DRUGS (3)
  1. RIVASTIGMIN [Suspect]
     Dosage: UNK UKN, UNK
     Route: 062
  2. RIVASTIGMIN [Suspect]
     Dosage: 13.5 MG, DAILY
     Route: 062
  3. RIVASTIGMIN [Suspect]
     Dosage: 9 MG, DAILY
     Route: 062

REACTIONS (3)
  - Loss of consciousness [Recovering/Resolving]
  - Autonomic nervous system imbalance [Unknown]
  - Therapeutic response increased [Unknown]
